FAERS Safety Report 13679661 (Version 4)
Quarter: 2017Q3

REPORT INFORMATION
  Report Type: Spontaneous
  Country: CH (occurrence: CH)
  Receive Date: 20170622
  Receipt Date: 20170717
  Transmission Date: 20171127
  Serious: Yes (Life-Threatening, Hospitalization, Other)
  Sender: FDA-Public Use
  Company Number: CH-PFIZER INC-2017266578

PATIENT
  Age: 45 Year
  Sex: Female

DRUGS (5)
  1. MITOMYCIN. [Suspect]
     Active Substance: MITOMYCIN
     Indication: SQUAMOUS CELL CARCINOMA
     Dosage: 1.2 MG/M2, 4X/DAY  (FOUR INTRA-ARTERIAL INFUSIONS PER DAY FOR TWO DAYS)
     Route: 013
  2. METHOTREXATE SODIUM. [Suspect]
     Active Substance: METHOTREXATE SODIUM
     Indication: SQUAMOUS CELL CARCINOMA
     Dosage: 27.5 MG/M2, 4X/DAY  (FOUR INTRA-ARTERIAL INFUSIONS PER DAY FOR TWO DAYS)
     Route: 013
  3. CISPLATIN. [Suspect]
     Active Substance: CISPLATIN
     Indication: SQUAMOUS CELL CARCINOMA
     Dosage: 8.5 MG/M2, 4X/DAY  (FOUR INTRA-ARTERIAL INFUSIONS PER DAY FOR TWO DAYS)
     Route: 013
  4. BLEOMYCIN [Suspect]
     Active Substance: BLEOMYCIN SULFATE
     Indication: SQUAMOUS CELL CARCINOMA
     Dosage: 10 MG, SINGLE (ON THE FIRST DAY)
     Route: 042
  5. FLUOROURACIL. [Suspect]
     Active Substance: FLUOROURACIL
     Indication: SQUAMOUS CELL CARCINOMA
     Dosage: 275 MG/M2, 4X/DAY  (FOUR INTRA-ARTERIAL INFUSIONS PER DAY FOR TWO DAYS)
     Route: 013

REACTIONS (2)
  - Cardiomyopathy [Recovered/Resolved]
  - Cardiogenic shock [Recovered/Resolved]
